FAERS Safety Report 10583818 (Version 1)
Quarter: 2014Q4

REPORT INFORMATION
  Report Type: Spontaneous
  Country: CA (occurrence: CA)
  Receive Date: 20141114
  Receipt Date: 20141114
  Transmission Date: 20150529
  Serious: Yes (Other)
  Sender: FDA-Public Use
  Company Number: CHPA2014CA015233

PATIENT
  Age: 63 Year
  Sex: Female

DRUGS (2)
  1. KERI FAST ABSORBING FRAGRANCE FREE [Suspect]
     Active Substance: DIMETHICONE\PETROLATUM
     Indication: DRY SKIN PROPHYLAXIS
     Dosage: UNK
     Route: 065
     Dates: start: 2014, end: 2014
  2. KERI ORIGINAL [Suspect]
     Active Substance: LANOLIN\MINERAL OIL
     Indication: DRY SKIN PROPHYLAXIS
     Dosage: ONCE A DAY ON MY BODY AND PROBABLY SIX TIMES ON MY HANDS
     Route: 061
     Dates: start: 2014

REACTIONS (1)
  - Hypersensitivity [Not Recovered/Not Resolved]

NARRATIVE: CASE EVENT DATE: 2014
